FAERS Safety Report 7762666-8 (Version None)
Quarter: 2011Q3

REPORT INFORMATION
  Report Type: 
  Country: None (occurrence: None)
  Receive Date: 20110920
  Receipt Date: 20110909
  Transmission Date: 20111222
  Serious: Yes (Life-Threatening, Hospitalization, Other)
  Sender: FDA-Public Use
  Company Number: JP-CELGENEUS-087-50794-11090600

PATIENT
  Sex: Female
  Weight: 47 kg

DRUGS (18)
  1. VIDAZA [Suspect]
     Dosage: 75 MILLIGRAM/SQ. METER
     Route: 041
     Dates: start: 20110425, end: 20110501
  2. TRANSFUSION [Concomitant]
     Route: 041
  3. SENNOSIDE [Concomitant]
     Dosage: 24 MILLIGRAM
     Route: 048
  4. NEUTROGIN [Concomitant]
     Dosage: 100 MICROGRAM
     Route: 058
     Dates: start: 20110516, end: 20110522
  5. RANITIDINE [Concomitant]
     Dosage: 150 MILLIGRAM
     Route: 048
     Dates: end: 20110415
  6. POLAPREZINC [Concomitant]
     Dosage: 150 MILLIGRAM
     Route: 048
     Dates: start: 20110517
  7. ACYCLOVIR [Concomitant]
     Route: 065
     Dates: start: 20110526, end: 20110531
  8. KYTRIL [Concomitant]
     Dosage: 3 MILLIGRAM
     Route: 041
     Dates: start: 20110425, end: 20110501
  9. ISONIAZID [Concomitant]
     Dosage: 200 MILLIGRAM
     Route: 048
  10. VIDAZA [Suspect]
     Dosage: 75 MILLIGRAM/SQ. METER
     Route: 041
     Dates: start: 20110326, end: 20110401
  11. ITRACONAZOLE [Concomitant]
     Dosage: 100 MILLIGRAM
     Route: 048
  12. NEUTROGIN [Concomitant]
     Dosage: 100 MICROGRAM
     Route: 058
     Dates: start: 20110414, end: 20110421
  13. RABEPRAZOLE SODIUM [Concomitant]
     Dosage: 10 MILLIGRAM
     Route: 048
     Dates: start: 20110416
  14. NEUPOGEN [Concomitant]
     Route: 065
     Dates: start: 20110414
  15. NEUPOGEN [Concomitant]
     Route: 065
     Dates: start: 20110516
  16. CEFEPIME [Concomitant]
     Dosage: 2 GRAM
     Route: 041
     Dates: start: 20110401
  17. DAIPHEN [Concomitant]
     Dosage: 500 MILLIGRAM
     Route: 048
  18. CEFEPIME [Concomitant]
     Route: 041
     Dates: start: 20110501

REACTIONS (7)
  - ALANINE AMINOTRANSFERASE INCREASED [None]
  - NEUTROPENIA [None]
  - CHOLANGITIS [None]
  - SEPSIS [None]
  - ASPARTATE AMINOTRANSFERASE INCREASED [None]
  - FEBRILE NEUTROPENIA [None]
  - HERPES SIMPLEX [None]
